FAERS Safety Report 24706652 (Version 1)
Quarter: 2024Q4

REPORT INFORMATION
  Report Type: Spontaneous
  Country: US (occurrence: None)
  Receive Date: 20241206
  Receipt Date: 20241206
  Transmission Date: 20250115
  Serious: No
  Sender: Public
  Company Number: None

PATIENT
  Age: 77 Year
  Sex: Female

DRUGS (2)
  1. MYCOPHENOLATE MOFETIL [Suspect]
     Active Substance: MYCOPHENOLATE MOFETIL
     Indication: Lung transplant
     Dosage: 250MG TWICE A  DAY ORAL?
     Route: 048
     Dates: start: 202206
  2. TACROLIMUS [Suspect]
     Active Substance: TACROLIMUS

REACTIONS (1)
  - External ear neoplasm malignant [None]

NARRATIVE: CASE EVENT DATE: 20241104
